FAERS Safety Report 18700730 (Version 2)
Quarter: 2021Q1

REPORT INFORMATION
  Report Type: Spontaneous
  Country: US (occurrence: US)
  Receive Date: 20210105
  Receipt Date: 20210125
  Transmission Date: 20210419
  Serious: No
  Sender: FDA-Public Use
  Company Number: US-ALLERGAN-2017243US

PATIENT
  Age: 78 Year
  Sex: Female

DRUGS (2)
  1. PRED FORTE [Suspect]
     Active Substance: PREDNISOLONE ACETATE
     Indication: PUNCTATE KERATITIS
     Dosage: UNK
  2. RESTASIS [Suspect]
     Active Substance: CYCLOSPORINE
     Indication: PUNCTATE KERATITIS
     Dosage: 2 GTT, BID

REACTIONS (3)
  - Spinal fracture [Recovered/Resolved]
  - Off label use [Unknown]
  - Headache [Unknown]

NARRATIVE: CASE EVENT DATE: 201902
